FAERS Safety Report 24759835 (Version 1)
Quarter: 2024Q4

REPORT INFORMATION
  Report Type: Spontaneous
  Country: US (occurrence: US)
  Receive Date: 20241220
  Receipt Date: 20241220
  Transmission Date: 20250115
  Serious: Yes (Other)
  Sender: ALEXION PHARMACEUTICALS
  Company Number: US-AstraZeneca-CH-00771773A

PATIENT
  Age: 67 Year

DRUGS (4)
  1. TAGRISSO [Suspect]
     Active Substance: OSIMERTINIB
     Indication: Metastases to lung
     Dosage: UNK UNK, QD
  2. TAGRISSO [Suspect]
     Active Substance: OSIMERTINIB
     Dosage: UNK UNK, QD
     Route: 048
  3. TAGRISSO [Suspect]
     Active Substance: OSIMERTINIB
     Dosage: UNK UNK, QD
  4. TAGRISSO [Suspect]
     Active Substance: OSIMERTINIB
     Dosage: UNK UNK, QD
     Route: 048

REACTIONS (3)
  - Interstitial lung disease [Recovering/Resolving]
  - Bronchospasm [Recovering/Resolving]
  - Cough [Recovering/Resolving]
